FAERS Safety Report 6330845-2 (Version None)
Quarter: 2009Q3

REPORT INFORMATION
  Report Type: 
  Country: None (occurrence: None)
  Receive Date: 20090827
  Receipt Date: 20090820
  Transmission Date: 20100115
  Serious: Yes (Hospitalization)
  Sender: FDA-Public Use
  Company Number: US-JNJFOC-20090807025

PATIENT
  Sex: Female
  Weight: 69.4 kg

DRUGS (18)
  1. TAPENTADOL HYDROCHLORIDE [Suspect]
     Indication: PAIN
     Route: 048
  2. FLAGYL [Concomitant]
     Indication: GASTROINTESTINAL INFECTION
  3. CHOLESTYRAMINE [Concomitant]
     Indication: GASTROINTESTINAL INFECTION
  4. LOMOTIL [Concomitant]
     Indication: DIARRHOEA
  5. ALLOPURINOL [Concomitant]
     Indication: GOUT
  6. KIONEX [Concomitant]
  7. TOPROL-XL [Concomitant]
     Indication: HYPERTENSION
  8. PRILOSEC [Concomitant]
     Indication: ABDOMINAL DISCOMFORT
  9. VITAMIN D [Concomitant]
     Indication: NUTRITIONAL SUPPORT
  10. CALCIUM [Concomitant]
     Indication: NUTRITIONAL SUPPORT
  11. SYNTHROID [Concomitant]
     Indication: THYROID DISORDER
  12. ZOLOFT [Concomitant]
     Indication: ANXIETY
  13. NORVASC [Concomitant]
  14. NEURONTIN [Concomitant]
  15. SODIUM BICARBONATE IN PLASTIC CONTAINER [Concomitant]
  16. FISH OIL [Concomitant]
  17. FOLIC ACID [Concomitant]
  18. AMBIEN [Concomitant]

REACTIONS (2)
  - DEHYDRATION [None]
  - DIARRHOEA [None]
